FAERS Safety Report 21018886 (Version 1)
Quarter: 2022Q2

REPORT INFORMATION
  Report Type: Report from Study
  Country: US (occurrence: US)
  Receive Date: 20220628
  Receipt Date: 20220628
  Transmission Date: 20220721
  Serious: Yes (Hospitalization)
  Sender: FDA-Public Use
  Company Number: US-HLS-202200613

PATIENT
  Age: 66 Year

DRUGS (1)
  1. CLOZAPINE [Suspect]
     Active Substance: CLOZAPINE
     Indication: Product used for unknown indication
     Dosage: 300 MG IN THE MORNING AND 400 MG AT NIGHT
     Route: 048

REACTIONS (6)
  - Neutrophil count increased [Unknown]
  - Injury [Unknown]
  - Atelectasis [Unknown]
  - Infection [Unknown]
  - Neutrophilia [Unknown]
  - Hypotension [Unknown]

NARRATIVE: CASE EVENT DATE: 20220614
